FAERS Safety Report 25888473 (Version 2)
Quarter: 2025Q4

REPORT INFORMATION
  Report Type: Report from Study
  Country: US (occurrence: US)
  Receive Date: 20251007
  Receipt Date: 20251021
  Transmission Date: 20260118
  Serious: Yes (Other)
  Sender: EMERGENT BIOSOLUTIONS
  Company Number: US-EMERGENT BIOSOLUTIONS-25000152

PATIENT
  Age: 2 Year
  Sex: Female
  Weight: 11 kg

DRUGS (4)
  1. TEMBEXA [Suspect]
     Active Substance: BRINCIDOFOVIR
     Indication: Adenovirus infection
     Dosage: UNK, FIRST DOSE
     Dates: start: 20250920
  2. CIDOFOVIR [Concomitant]
     Active Substance: CIDOFOVIR
     Indication: Adenovirus infection
     Dosage: UNK
     Route: 065
     Dates: start: 2025
  3. T cells [Concomitant]
     Indication: Adenovirus infection
     Dosage: UNK, THREE OCCASIONS
     Route: 065
     Dates: start: 2025
  4. TACROLIMUS [Concomitant]
     Active Substance: TACROLIMUS
     Indication: Adenovirus infection
     Dosage: UNK, DOSE REDUCED
     Route: 065
     Dates: start: 2025

REACTIONS (3)
  - Adenovirus infection [Unknown]
  - Condition aggravated [Unknown]
  - Product use in unapproved indication [Unknown]
